FAERS Safety Report 7667918-8 (Version None)
Quarter: 2011Q3

REPORT INFORMATION
  Report Type: 
  Country: None (occurrence: None)
  Receive Date: 20110808
  Receipt Date: 20110729
  Transmission Date: 20111222
  Serious: Yes (Hospitalization)
  Sender: FDA-Public Use
  Company Number: US-BIOGENIDEC-2011BI023842

PATIENT
  Age: 62 Year
  Sex: Male

DRUGS (2)
  1. TYSABRI [Suspect]
     Indication: MULTIPLE SCLEROSIS
     Route: 042
     Dates: start: 20090408, end: 20090729
  2. TYSABRI [Suspect]
     Route: 042
     Dates: start: 20110118

REACTIONS (6)
  - HEART RATE ABNORMAL [None]
  - SELF INJURIOUS BEHAVIOUR [None]
  - BLOOD PRESSURE FLUCTUATION [None]
  - URINARY TRACT INFECTION [None]
  - ESCHERICHIA URINARY TRACT INFECTION [None]
  - EOSINOPHILIA [None]
